APPROVED DRUG PRODUCT: TAPAZOLE
Active Ingredient: METHIMAZOLE
Strength: 10MG
Dosage Form/Route: TABLET;ORAL
Application: A040320 | Product #002
Applicant: KING PHARMACEUTICALS LLC
Approved: Mar 31, 2000 | RLD: No | RS: No | Type: DISCN